FAERS Safety Report 4743536-6 (Version None)
Quarter: 2005Q3

REPORT INFORMATION
  Report Type: 
  Country: None (occurrence: None)
  Receive Date: 20050812
  Receipt Date: 20050802
  Transmission Date: 20060218
  Serious: Yes (Other)
  Sender: FDA-Public Use
  Company Number: US-JNJFOC-20050800931

PATIENT
  Age: 60 Year

DRUGS (1)
  1. REMICADE [Suspect]
     Route: 042

REACTIONS (2)
  - CALCIPHYLAXIS [None]
  - SKIN LESION [None]
